FAERS Safety Report 5141222-4 (Version None)
Quarter: 2006Q4

REPORT INFORMATION
  Report Type: 
  Country: None (occurrence: None)
  Receive Date: 20061101
  Receipt Date: 20061026
  Transmission Date: 20070319
  Serious: Yes (Life-Threatening)
  Sender: FDA-Public Use
  Company Number: PHFR2006GB03182

PATIENT
  Age: 66 Year
  Sex: Female
  Weight: 44 kg

DRUGS (2)
  1. EFORMOTEROL [Suspect]
     Indication: CHRONIC OBSTRUCTIVE PULMONARY DISEASE
     Dosage: 6 MG, QID
     Dates: start: 20060517, end: 20060528
  2. MEFENAMIC ACID [Concomitant]
     Indication: PAIN
     Dosage: 500 MG, TID
     Route: 048
     Dates: start: 19970101

REACTIONS (1)
  - SWELLING FACE [None]
